FAERS Safety Report 8442812-3 (Version None)
Quarter: 2012Q2

REPORT INFORMATION
  Report Type: 
  Country: None (occurrence: None)
  Receive Date: 20120615
  Receipt Date: 20120608
  Transmission Date: 20120825
  Serious: Yes (Hospitalization, Other)
  Sender: FDA-Public Use
  Company Number: FR-B.I. PHARMACEUTICALS,INC./RIDGEFIELD-2011-FF-01199FF

PATIENT
  Age: 84 Year
  Sex: Male
  Weight: 71 kg

DRUGS (9)
  1. CRESTOR [Concomitant]
     Indication: MYOCARDIAL ISCHAEMIA
  2. ANDROCUR [Concomitant]
     Indication: BENIGN PROSTATIC HYPERPLASIA
  3. ASPIRIN [Concomitant]
     Indication: MYOCARDIAL ISCHAEMIA
  4. BISOPROLOL FUMARATE [Concomitant]
     Indication: MYOCARDIAL ISCHAEMIA
  5. ZOPICLONE [Concomitant]
  6. AMLODIPINE BESYLATE [Concomitant]
     Indication: MYOCARDIAL ISCHAEMIA
  7. PRADAXA [Suspect]
     Indication: ATRIAL FIBRILLATION
     Dosage: 220 MG
     Route: 048
     Dates: end: 20110625
  8. PERINDOPRIL ERBUMINE [Concomitant]
     Indication: MYOCARDIAL ISCHAEMIA
  9. EXELON [Concomitant]
     Indication: DEMENTIA ALZHEIMER'S TYPE

REACTIONS (5)
  - RECTAL HAEMORRHAGE [None]
  - DEHYDRATION [None]
  - PROTHROMBIN LEVEL DECREASED [None]
  - RENAL FAILURE ACUTE [None]
  - INTERNATIONAL NORMALISED RATIO INCREASED [None]
